FAERS Safety Report 23347157 (Version 1)
Quarter: 2023Q4

REPORT INFORMATION
  Report Type: Spontaneous
  Country: US (occurrence: None)
  Receive Date: 20231228
  Receipt Date: 20231228
  Transmission Date: 20240109
  Serious: Yes (Other)
  Sender: FDA-Public Use
  Company Number: None

PATIENT
  Age: 34 Year
  Sex: Female
  Weight: 72 kg

DRUGS (1)
  1. UBRELVY [Suspect]
     Active Substance: UBROGEPANT
     Indication: Migraine
     Dosage: 1 CAPSULE AS NEEDED ORAL
     Route: 048
     Dates: start: 20231226, end: 20231227

REACTIONS (6)
  - Facial pain [None]
  - Ear pain [None]
  - Neck pain [None]
  - Oropharyngeal pain [None]
  - Swelling [None]
  - Swelling face [None]

NARRATIVE: CASE EVENT DATE: 20231227
